FAERS Safety Report 10963478 (Version 1)
Quarter: 2015Q1

REPORT INFORMATION
  Report Type: Spontaneous
  Country: US (occurrence: None)
  Receive Date: 20150226
  Receipt Date: 20150226
  Transmission Date: 20150721
  Serious: No
  Sender: FDA-Public Use
  Company Number: TPA2010A00304

PATIENT
  Age: 63 Year
  Sex: Male
  Weight: 124.74 kg

DRUGS (4)
  1. LIPITOR [Concomitant]
     Active Substance: ATORVASTATIN CALCIUM
  2. ZETIA [Concomitant]
     Active Substance: EZETIMIBE
  3. LAVASA (FISH OIL) (ALL OTHER THERAPEUTIC PRODUCTS) [Concomitant]
  4. ULORIC [Suspect]
     Active Substance: FEBUXOSTAT
     Indication: GOUT
     Dosage: 1 IN 1 D
     Route: 048
     Dates: start: 201001, end: 20100121

REACTIONS (3)
  - Dry mouth [None]
  - Joint stiffness [None]
  - Arthralgia [None]

NARRATIVE: CASE EVENT DATE: 201001
